FAERS Safety Report 24003564 (Version 1)
Quarter: 2024Q2

REPORT INFORMATION
  Report Type: Spontaneous
  Country: US (occurrence: US)
  Receive Date: 20240624
  Receipt Date: 20240624
  Transmission Date: 20240716
  Serious: Yes (Death, Hospitalization, Other)
  Sender: FDA-Public Use
  Company Number: US-AMGEN-USASP2024121936

PATIENT
  Age: 67 Year
  Sex: Male

DRUGS (1)
  1. ADALIMUMAB [Suspect]
     Active Substance: ADALIMUMAB\ISOPROPYL ALCOHOL
     Indication: Psoriasis
     Dosage: UNK, QWK
     Route: 065

REACTIONS (10)
  - Death [Fatal]
  - Acute respiratory distress syndrome [Unknown]
  - COVID-19 pneumonia [Unknown]
  - Legionella infection [Unknown]
  - Endocarditis [Unknown]
  - Septic embolus [Unknown]
  - Pneumococcal infection [Unknown]
  - Candida infection [Unknown]
  - Immunosuppression [Unknown]
  - Inappropriate schedule of product administration [Unknown]
